FAERS Safety Report 10673439 (Version 1)
Quarter: 2014Q4

REPORT INFORMATION
  Report Type: Spontaneous
  Country: IT (occurrence: IT)
  Receive Date: 20141224
  Receipt Date: 20141224
  Transmission Date: 20150529
  Serious: Yes (Other)
  Sender: FDA-Public Use
  Company Number: IT-ACCORD-027747

PATIENT
  Age: 21 Year
  Sex: Female

DRUGS (2)
  1. ETHINYLESTRADIOL/NORGESTREL [Interacting]
     Active Substance: ETHINYL ESTRADIOL\NORGESTREL
     Indication: MENSTRUAL DISORDER
     Dosage: DOSE: 0.02 MG/0.1 MG COMBINED
     Route: 048
  2. TOPIRAMATE. [Suspect]
     Active Substance: TOPIRAMATE
     Indication: MIGRAINE
     Dosage: INITIALLY 25 MG/DAY, TITRATED TO A DOSAGE OF 50MG TWICE DAILY.

REACTIONS (2)
  - Drug interaction [Recovered/Resolved]
  - Ovarian cyst [Recovered/Resolved]
